FAERS Safety Report 9728078 (Version 2)
Quarter: 2014Q1

REPORT INFORMATION
  Report Type: Report from Study
  Country: US (occurrence: US)
  Receive Date: 20131204
  Receipt Date: 20140327
  Transmission Date: 20141002
  Serious: No
  Sender: FDA-Public Use
  Company Number: PHEH2013US024862

PATIENT
  Age: 32 Year
  Sex: Female
  Weight: 53.61 kg

DRUGS (7)
  1. TASIGNA [Suspect]
     Indication: CHRONIC MYELOID LEUKAEMIA
     Dosage: 200 MG, BID
     Route: 048
     Dates: start: 201305
  2. WARFARIN SODIUM [Concomitant]
  3. LORAZEPAM [Concomitant]
  4. PROCHLORPERAZINE [Concomitant]
  5. ZOFRAN [Concomitant]
  6. MULTI-VIT [Concomitant]
  7. NUVARING [Concomitant]

REACTIONS (4)
  - Upper respiratory tract infection [Unknown]
  - Pyrexia [Unknown]
  - Cough [Unknown]
  - Gastroenteritis viral [Unknown]
